FAERS Safety Report 21974747 (Version 4)
Quarter: 2023Q2

REPORT INFORMATION
  Report Type: Spontaneous
  Country: US (occurrence: US)
  Receive Date: 20230209
  Receipt Date: 20230419
  Transmission Date: 20230721
  Serious: No
  Sender: FDA-Public Use
  Company Number: US-Millicent Holdings Ltd.-MILL20230038

PATIENT
  Age: 61 Year
  Sex: Female
  Weight: 60.836 kg

DRUGS (7)
  1. FEMRING [Suspect]
     Active Substance: ESTRADIOL ACETATE
     Indication: Menopausal symptoms
     Dosage: 0.10 MG/DAY
     Route: 067
     Dates: start: 20221201
  2. FEMRING [Suspect]
     Active Substance: ESTRADIOL ACETATE
     Indication: Night sweats
     Route: 067
  3. FEMRING [Suspect]
     Active Substance: ESTRADIOL ACETATE
     Indication: Breast tenderness
  4. FEMRING [Suspect]
     Active Substance: ESTRADIOL ACETATE
     Indication: Acne
  5. FEMRING [Suspect]
     Active Substance: ESTRADIOL ACETATE
     Indication: Migraine
  6. FEMRING [Suspect]
     Active Substance: ESTRADIOL ACETATE
     Indication: Hot flush
  7. VALACYCLOVIR [Concomitant]
     Active Substance: VALACYCLOVIR HYDROCHLORIDE
     Indication: Herpes simplex
     Dosage: 1 TAB
     Route: 048

REACTIONS (14)
  - Night sweats [Not Recovered/Not Resolved]
  - Breast tenderness [Not Recovered/Not Resolved]
  - Pain in extremity [Recovered/Resolved]
  - Dry skin [Recovered/Resolved]
  - Acne [Recovered/Resolved]
  - Visual impairment [Recovered/Resolved]
  - Migraine [Recovered/Resolved]
  - Pain [Recovered/Resolved]
  - Suspected product quality issue [None]
  - Hot flush [Recovered/Resolved]
  - Device issue [Unknown]
  - Therapeutic product effect decreased [Not Recovered/Not Resolved]
  - Drug ineffective [Recovered/Resolved]
  - Product use in unapproved indication [None]

NARRATIVE: CASE EVENT DATE: 20221201
